FAERS Safety Report 4262377-X (Version None)
Quarter: 2004Q1

REPORT INFORMATION
  Report Type: 
  Country: None (occurrence: None)
  Receive Date: 20040102
  Receipt Date: 20031222
  Transmission Date: 20041129
  Serious: Yes (Other)
  Sender: FDA-Public Use
  Company Number: PHFR2003GB04916

PATIENT
  Sex: Male

DRUGS (1)
  1. VALSARTAN [Suspect]
     Indication: HYPERTENSION
     Dosage: 80MG/DAY
     Route: 048
     Dates: start: 20030404, end: 20031017

REACTIONS (3)
  - CHEST DISCOMFORT [None]
  - DYSPNOEA [None]
  - THROAT TIGHTNESS [None]
